FAERS Safety Report 6767586-3 (Version None)
Quarter: 2010Q2

REPORT INFORMATION
  Report Type: 
  Country: None (occurrence: None)
  Receive Date: 20100614
  Receipt Date: 20100608
  Transmission Date: 20101027
  Serious: Yes (Death, Hospitalization, Other)
  Sender: FDA-Public Use
  Company Number: PHHY2010EC36657

PATIENT
  Sex: Male

DRUGS (1)
  1. GLEEVEC [Suspect]
     Indication: CHRONIC MYELOID LEUKAEMIA
     Dosage: 800 MG, DAILY
     Route: 048
     Dates: start: 20070421, end: 20100530

REACTIONS (5)
  - ANAEMIA [None]
  - BLAST CRISIS IN MYELOGENOUS LEUKAEMIA [None]
  - LEUKOSTASIS [None]
  - PULMONARY SEPSIS [None]
  - RESPIRATORY DISTRESS [None]
